FAERS Safety Report 17355223 (Version 1)
Quarter: 2020Q1

REPORT INFORMATION
  Report Type: Spontaneous
  Country: US (occurrence: US)
  Receive Date: 20200131
  Receipt Date: 20200131
  Transmission Date: 20200409
  Serious: No
  Sender: FDA-Public Use
  Company Number: US-009507513-2001USA008714

PATIENT
  Sex: Male

DRUGS (5)
  1. VIREAD [Concomitant]
     Active Substance: TENOFOVIR DISOPROXIL FUMARATE
  2. RITONAVIR. [Concomitant]
     Active Substance: RITONAVIR
  3. INTELENCE [Concomitant]
     Active Substance: ETRAVIRINE
  4. ISENTRESS [Suspect]
     Active Substance: RALTEGRAVIR POTASSIUM
     Indication: HIV INFECTION
     Route: 048
  5. DARUNAVIR [Concomitant]
     Active Substance: DARUNAVIR

REACTIONS (2)
  - Virologic failure [Unknown]
  - Therapy non-responder [Unknown]
